FAERS Safety Report 23515393 (Version 1)
Quarter: 2024Q1

REPORT INFORMATION
  Report Type: Report from Study
  Country: US (occurrence: US)
  Receive Date: 20240213
  Receipt Date: 20240213
  Transmission Date: 20240410
  Serious: Yes (Death)
  Sender: FDA-Public Use
  Company Number: US-JNJFOC-20240227092

PATIENT
  Age: 59 Year
  Sex: Male

DRUGS (1)
  1. CILTACABTAGENE AUTOLEUCEL [Suspect]
     Active Substance: CILTACABTAGENE AUTOLEUCEL
     Indication: Plasma cell myeloma
     Dosage: TOTAL NUMBER OF CELLS ADMINISTERED: 14.68, TOTAL CELLS EXPONENT VALUE: 6?14.68 X 10^6
     Route: 065
     Dates: start: 2022, end: 2022

REACTIONS (1)
  - Bacterial infection [Fatal]
